FAERS Safety Report 7161318-5 (Version None)
Quarter: 2010Q4

REPORT INFORMATION
  Report Type: 
  Country: None (occurrence: None)
  Receive Date: 20101210
  Receipt Date: 20101210
  Transmission Date: 20110411
  Serious: No
  Sender: FDA-Public Use
  Company Number: None

PATIENT
  Sex: Female
  Weight: 53.0709 kg

DRUGS (6)
  1. SPIRONOLACTONE [Suspect]
     Indication: ALOPECIA
     Dosage: ONE TAB EVERY AM PO 047, SINCE 11/18/10
     Route: 048
     Dates: start: 20101118, end: 20101130
  2. SPIRONOLACTONE [Suspect]
     Indication: HYPERTENSION
     Dosage: ONE TAB EVERY AM PO 047, SINCE 11/18/10
     Route: 048
     Dates: start: 20101118, end: 20101130
  3. ST. JOHNS WORT [Concomitant]
  4. LISINOPRIL [Concomitant]
  5. ADVIL [Concomitant]
  6. ZANTAC [Concomitant]

REACTIONS (4)
  - PAIN [None]
  - PRURITUS [None]
  - PYREXIA [None]
  - RASH MACULO-PAPULAR [None]
